FAERS Safety Report 9057576 (Version 1)
Quarter: 2013Q1

REPORT INFORMATION
  Report Type: Spontaneous
  Country: US (occurrence: None)
  Receive Date: 20130204
  Receipt Date: 20130204
  Transmission Date: 20140127
  Serious: Yes (Hospitalization)
  Sender: FDA-Public Use
  Company Number: None

PATIENT
  Age: 85 Year
  Sex: Female
  Weight: 56 kg

DRUGS (5)
  1. ASA [Suspect]
     Indication: THROMBOSIS PROPHYLAXIS
     Dosage: 81 MG MWF PO
  2. DILTIAZEM [Concomitant]
  3. LISINOPRIL [Concomitant]
  4. TOPROL XL [Concomitant]
  5. MEVACOR [Concomitant]

REACTIONS (1)
  - Small intestinal ulcer haemorrhage [None]
